FAERS Safety Report 6266589-5 (Version None)
Quarter: 2009Q3

REPORT INFORMATION
  Report Type: 
  Country: None (occurrence: None)
  Receive Date: 20090710
  Receipt Date: 20090706
  Transmission Date: 20100115
  Serious: Yes (Disabling)
  Sender: FDA-Public Use
  Company Number: 318069

PATIENT
  Sex: Female

DRUGS (2)
  1. BUPIVACAINE HYDROCHLORIDE AND EPINEPHRINE [Suspect]
     Indication: ANALGESIA
     Dosage: FOR UP TO 48 HOURS OR MORE, INJECTION
     Dates: start: 20050901
  2. ROPIVACAINE HYDROCHLORIDE [Suspect]
     Indication: ANALGESIA
     Dosage: FOR UP TO 48 HOURS OR MORE, INJECTION
     Dates: start: 20080201

REACTIONS (6)
  - CHONDROLYSIS [None]
  - DISCOMFORT [None]
  - INJECTION SITE MOVEMENT IMPAIRMENT [None]
  - JOINT RANGE OF MOTION DECREASED [None]
  - PAIN [None]
  - SURGERY [None]
